FAERS Safety Report 8083558-3 (Version None)
Quarter: 2012Q1

REPORT INFORMATION
  Report Type: 
  Country: None (occurrence: None)
  Receive Date: 20120127
  Receipt Date: 20110117
  Transmission Date: 20120608
  Serious: No
  Sender: FDA-Public Use
  Company Number: US-ABBOTT-11P-163-0698537-00

PATIENT
  Age: 47 Year
  Sex: Female

DRUGS (9)
  1. MIGRAINE MEDICATION [Concomitant]
     Indication: MIGRAINE
  2. OXYCODONE HCL [Concomitant]
     Indication: PAIN
     Dosage: 15 MG EVERY 4-6 HOURS AS NEEDED UP TO 5 TIMES A DAY
     Route: 048
  3. HUMIRA [Suspect]
     Indication: PSORIATIC ARTHROPATHY
     Dates: start: 20090101
  4. HUMIRA [Suspect]
  5. CLARITIN [Concomitant]
     Indication: PRODUCT USED FOR UNKNOWN INDICATION
     Route: 048
  6. NEXIUM [Concomitant]
     Indication: GASTRIC BYPASS
     Route: 048
  7. KLONOPIN [Concomitant]
     Indication: PRODUCT USED FOR UNKNOWN INDICATION
     Route: 048
  8. BACLOFEN [Concomitant]
     Indication: MUSCLE RELAXANT THERAPY
     Route: 048
  9. NASONEX [Concomitant]
     Indication: SEASONAL ALLERGY
     Dosage: SPRAY

REACTIONS (6)
  - INJECTION SITE PAIN [None]
  - DEVICE MALFUNCTION [None]
  - DRUG DOSE OMISSION [None]
  - INJECTION SITE HAEMORRHAGE [None]
  - OROPHARYNGEAL PAIN [None]
  - INTERVERTEBRAL DISC PROTRUSION [None]
